FAERS Safety Report 4699207-8 (Version None)
Quarter: 2005Q2

REPORT INFORMATION
  Report Type: 
  Country: None (occurrence: None)
  Receive Date: 20050624
  Receipt Date: 20050509
  Transmission Date: 20051028
  Serious: Yes (Other)
  Sender: FDA-Public Use
  Company Number: US-MERCK-0505USA01047

PATIENT
  Age: 76 Year
  Sex: Female
  Weight: 36 kg

DRUGS (11)
  1. FOSAMAX [Suspect]
     Indication: OSTEOPOROSIS
     Route: 048
     Dates: start: 20020501, end: 20050501
  2. KENALOG [Concomitant]
     Indication: NERVOUS SYSTEM DISORDER
     Route: 051
  3. PREDNISONE [Concomitant]
     Indication: NERVOUS SYSTEM DISORDER
     Route: 051
  4. SYNTHROID [Concomitant]
     Indication: HYPOTHYROIDISM
     Route: 048
  5. RESTORIL [Concomitant]
     Route: 065
  6. DARVOCET-N 100 [Concomitant]
     Indication: ARTHRITIS
     Route: 065
  7. SOMA [Concomitant]
     Route: 065
  8. METOPROLOL [Concomitant]
     Indication: HYPERTENSION
     Route: 048
  9. ANTIVERT [Concomitant]
     Route: 065
  10. CARDURA [Concomitant]
     Indication: HYPERTENSION
     Route: 048
  11. VALIUM [Concomitant]
     Indication: ANXIETY
     Route: 048

REACTIONS (2)
  - OSTEONECROSIS [None]
  - STAPHYLOCOCCAL INFECTION [None]
